FAERS Safety Report 18396083 (Version 1)
Quarter: 2020Q4

REPORT INFORMATION
  Report Type: Spontaneous
  Country: US (occurrence: US)
  Receive Date: 20201019
  Receipt Date: 20201019
  Transmission Date: 20210114
  Serious: Yes (Hospitalization, Other)
  Sender: FDA-Public Use
  Company Number: US-ABBVIE-17K-163-3064956-00

PATIENT
  Age: 57 Year
  Sex: Female

DRUGS (8)
  1. KEFLEX [Concomitant]
     Active Substance: CEPHALEXIN
     Indication: PROPHYLAXIS
  2. NORCO [Concomitant]
     Active Substance: ACETAMINOPHEN\HYDROCODONE BITARTRATE
     Indication: PAIN
     Dosage: 0.5 EVERY 6 HOURS PRN
     Route: 048
  3. LEVAQUIN [Concomitant]
     Active Substance: LEVOFLOXACIN
     Indication: PROPHYLAXIS
     Dosage: 1 PILL, QD (DAILY)
     Route: 048
  4. AMBIEN [Concomitant]
     Active Substance: ZOLPIDEM TARTRATE
     Indication: SLEEP DISORDER
     Dosage: 1 PILL, QD (DAILY)
     Route: 048
  5. IMBRUVICA [Suspect]
     Active Substance: IBRUTINIB
     Indication: CHRONIC LYMPHOCYTIC LEUKAEMIA
     Dosage: UNK
     Route: 065
     Dates: end: 2016
  6. MIRTAZAPINE. [Concomitant]
     Active Substance: MIRTAZAPINE
     Indication: ANTIDEPRESSANT THERAPY
     Dosage: 1 PILL, QD (DAILY)
     Route: 048
  7. LEVOTHYROXINE. [Concomitant]
     Active Substance: LEVOTHYROXINE
     Indication: THYROID DISORDER
     Dosage: 1 PILL, QD (DAILY)
     Route: 048
  8. VENCLEXTA [Suspect]
     Active Substance: VENETOCLAX
     Indication: CHRONIC LYMPHOCYTIC LEUKAEMIA
     Route: 048
     Dates: start: 20161209

REACTIONS (18)
  - Adverse event [Unknown]
  - Nausea [Recovered/Resolved]
  - Liver disorder [Recovered/Resolved]
  - Lymph node pain [Not Recovered/Not Resolved]
  - Migraine [Unknown]
  - Mental disorder [Unknown]
  - Laboratory test abnormal [Unknown]
  - Near death experience [Unknown]
  - Urine output decreased [Unknown]
  - Illness [Unknown]
  - Pruritus [Unknown]
  - Chronic lymphocytic leukaemia recurrent [Unknown]
  - Lymphadenopathy [Recovered/Resolved]
  - Tonsillar hypertrophy [Recovered/Resolved]
  - Blood electrolytes abnormal [Unknown]
  - Pain [Recovered/Resolved]
  - Anxiety [Not Recovered/Not Resolved]
  - Choking [Unknown]

NARRATIVE: CASE EVENT DATE: 2016
